FAERS Safety Report 10576084 (Version 1)
Quarter: 2014Q4

REPORT INFORMATION
  Report Type: Spontaneous
  Country: US (occurrence: None)
  Receive Date: 20141107
  Receipt Date: 20141107
  Transmission Date: 20150529
  Serious: Yes (Hospitalization)
  Sender: FDA-Public Use
  Company Number: PR 2028

PATIENT
  Age: 66 Year
  Sex: Female

DRUGS (5)
  1. FUSACHOL [Concomitant]
  2. ZIOPTAN [Suspect]
     Active Substance: TAFLUPROST
     Indication: GLAUCOMA
     Dates: start: 20140204
  3. EDIROL [Concomitant]
     Active Substance: ELDECALCITOL
  4. TEARBALANCE [Concomitant]
     Active Substance: HYALURONATE SODIUM
  5. RECALBON [Concomitant]
     Active Substance: MINODRONIC ACID

REACTIONS (1)
  - Goitre [None]

NARRATIVE: CASE EVENT DATE: 20140311
